FAERS Safety Report 14046376 (Version 1)
Quarter: 2017Q4

REPORT INFORMATION
  Report Type: Spontaneous
  Country: KR (occurrence: KR)
  Receive Date: 20171005
  Receipt Date: 20171005
  Transmission Date: 20180321
  Serious: Yes (Hospitalization)
  Sender: FDA-Public Use
  Company Number: KR-ACTELION-A-CH2017-160265

PATIENT
  Age: 62 Year
  Sex: Male

DRUGS (1)
  1. TRACLEER [Suspect]
     Active Substance: BOSENTAN
     Indication: RIGHT-TO-LEFT CARDIAC SHUNT
     Route: 048

REACTIONS (2)
  - Condition aggravated [Unknown]
  - Right-to-left cardiac shunt [Unknown]
